FAERS Safety Report 16921053 (Version 1)
Quarter: 2019Q4

REPORT INFORMATION
  Report Type: Spontaneous
  Country: US (occurrence: US)
  Receive Date: 20191015
  Receipt Date: 20191015
  Transmission Date: 20200122
  Serious: No
  Sender: FDA-Public Use
  Company Number: US-C B FLEET CO INC-201904-US-000887

PATIENT
  Sex: Female

DRUGS (1)
  1. MONISTAT 1 COMBINATION PACK [Suspect]
     Active Substance: MICONAZOLE NITRATE
     Indication: FUNGAL INFECTION
     Dosage: USED ONE
     Route: 067

REACTIONS (5)
  - Hypersensitivity [Recovered/Resolved]
  - Vaginal mucosal blistering [Recovered/Resolved]
  - Vaginal erosion [Recovered/Resolved]
  - Vulvovaginal pain [Recovered/Resolved]
  - Application site burn [Recovered/Resolved]
